FAERS Safety Report 5455498-7 (Version None)
Quarter: 2007Q3

REPORT INFORMATION
  Report Type: 
  Country: None (occurrence: None)
  Receive Date: 20070918
  Receipt Date: 20070702
  Transmission Date: 20080115
  Serious: Yes (Hospitalization)
  Sender: FDA-Public Use
  Company Number: US-ASTRAZENECA-2006UW21356

PATIENT
  Age: 63 Year
  Sex: Female
  Weight: 89.1 kg

DRUGS (1)
  1. SEROQUEL [Suspect]
     Indication: INSOMNIA
     Dosage: 50 - 600 MG
     Route: 048
     Dates: start: 20050101, end: 20050101

REACTIONS (2)
  - CHEST PAIN [None]
  - DIABETES MELLITUS [None]
